FAERS Safety Report 21669673 (Version 1)
Quarter: 2022Q4

REPORT INFORMATION
  Report Type: Spontaneous
  Country: CH (occurrence: CH)
  Receive Date: 20221201
  Receipt Date: 20221201
  Transmission Date: 20230113
  Serious: Yes (Other)
  Sender: FDA-Public Use
  Company Number: None

PATIENT
  Age: 72 Year
  Sex: Female

DRUGS (3)
  1. KEYTRUDA [Suspect]
     Active Substance: PEMBROLIZUMAB
     Indication: Breast cancer
     Dosage: KEYTRUDA? (PEMBROLIZUMAB) INTRAVENOUS 200 MG EVERY 3 WEEKS FROM 28-APR-2022 TO 30-JUN-2022
     Route: 042
     Dates: start: 20220428, end: 20220630
  2. CARBOPLATIN [Suspect]
     Active Substance: CARBOPLATIN
     Indication: Breast cancer
     Dosage: CARBOPLATIN INTRAVENOUSLY 130 MG EVERY 3 WEEKS 3 DOSES PER INTERVAL FROM 28-APR-2022 TO 14-JUL-2022
     Route: 042
     Dates: start: 20220428, end: 20220714
  3. PACLITAXEL [Suspect]
     Active Substance: PACLITAXEL
     Indication: Breast cancer
     Dosage: PACLITAXEL INTRAVENOUS 120 MG EVERY 3 WEEKS 3 DOSES PER INTERVAL FROM 28-APR-2022 TO 14-JUL-2022
     Route: 042
     Dates: start: 20220428, end: 20220714

REACTIONS (1)
  - Cystitis haemorrhagic [Recovering/Resolving]

NARRATIVE: CASE EVENT DATE: 20220601
